FAERS Safety Report 9293973 (Version 1)
Quarter: 2013Q1

REPORT INFORMATION
  Report Type: Spontaneous
  Country: US (occurrence: None)
  Receive Date: 20121221
  Receipt Date: 20121221
  Transmission Date: 20140127
  Serious: Yes (Other)
  Sender: FDA-Public Use
  Company Number: PHEH2012US004342

PATIENT
  Sex: Male
  Weight: 22.2 kg

DRUGS (2)
  1. FOCALIN [Suspect]
     Indication: ATTENTION DEFICIT/HYPERACTIVITY DISORDER
     Route: 048
     Dates: start: 20120207, end: 20120209
  2. CLONIDINE (CLONIDINE) [Concomitant]

REACTIONS (2)
  - Hallucination [None]
  - Vomiting [None]
